FAERS Safety Report 22539175 (Version 3)
Quarter: 2023Q4

REPORT INFORMATION
  Report Type: Spontaneous
  Country: FR (occurrence: FR)
  Receive Date: 20230609
  Receipt Date: 20231102
  Transmission Date: 20240110
  Serious: Yes (Other)
  Sender: FDA-Public Use
  Company Number: FR-BRISTOL-MYERS SQUIBB COMPANY-2023-078875

PATIENT
  Age: 37 Year
  Sex: Female
  Weight: 64 kg

DRUGS (3)
  1. KENACORT [Suspect]
     Active Substance: TRIAMCINOLONE
     Indication: Sinusitis
     Dosage: 40MG/1ML
     Route: 058
  2. KENACORT [Suspect]
     Active Substance: TRIAMCINOLONE
     Indication: Lacrimation increased
  3. KENACORT [Suspect]
     Active Substance: TRIAMCINOLONE
     Indication: Sneezing

REACTIONS (1)
  - Pilonidal disease [Unknown]

NARRATIVE: CASE EVENT DATE: 20230501
